FAERS Safety Report 6405456-0 (Version None)
Quarter: 2009Q4

REPORT INFORMATION
  Report Type: 
  Country: None (occurrence: None)
  Receive Date: 20091016
  Receipt Date: 20091016
  Transmission Date: 20100525
  Serious: Yes (Other)
  Sender: FDA-Public Use
  Company Number: None

PATIENT
  Sex: Male

DRUGS (6)
  1. CRESTOR [Suspect]
     Indication: BLOOD TRIGLYCERIDES INCREASED
     Dosage: 5 MG DAILY/EVE. ORAL
     Route: 048
     Dates: start: 20090101, end: 20090228
  2. CRESTOR [Suspect]
     Indication: HIGH DENSITY LIPOPROTEIN DECREASED
     Dosage: 5 MG DAILY/EVE. ORAL
     Route: 048
     Dates: start: 20090101, end: 20090228
  3. CRESTOR [Suspect]
     Indication: LOW DENSITY LIPOPROTEIN INCREASED
     Dosage: 5 MG DAILY/EVE. ORAL
     Route: 048
     Dates: start: 20090101, end: 20090228
  4. CRESTOR [Suspect]
     Indication: BLOOD TRIGLYCERIDES INCREASED
     Dosage: 5 MG DAILY/EVE. ORAL
     Route: 048
     Dates: start: 20090705, end: 20090919
  5. CRESTOR [Suspect]
     Indication: HIGH DENSITY LIPOPROTEIN DECREASED
     Dosage: 5 MG DAILY/EVE. ORAL
     Route: 048
     Dates: start: 20090705, end: 20090919
  6. CRESTOR [Suspect]
     Indication: LOW DENSITY LIPOPROTEIN INCREASED
     Dosage: 5 MG DAILY/EVE. ORAL
     Route: 048
     Dates: start: 20090705, end: 20090919

REACTIONS (7)
  - ALOPECIA [None]
  - DERMATITIS [None]
  - LETHARGY [None]
  - MYALGIA [None]
  - SKIN DISORDER [None]
  - TRICHORRHEXIS [None]
  - UNEVALUABLE EVENT [None]
